FAERS Safety Report 5535504-1 (Version None)
Quarter: 2007Q4

REPORT INFORMATION
  Report Type: 
  Country: None (occurrence: None)
  Receive Date: 20071206
  Receipt Date: 20071129
  Transmission Date: 20080405
  Serious: Yes (Other)
  Sender: FDA-Public Use
  Company Number: AR-ROCHE-534321

PATIENT
  Age: 71 Year
  Sex: Female

DRUGS (5)
  1. BONIVA [Suspect]
     Indication: OSTEOPOROSIS
     Route: 048
     Dates: start: 20070601
  2. ATENOLOL [Concomitant]
  3. LEVOTHYROXINE SODIUM [Concomitant]
     Dosage: DRU: LEVOTIROXINE
  4. CALCIUM [Concomitant]
  5. VENORUTON [Concomitant]

REACTIONS (3)
  - ANOREXIA [None]
  - GASTROINTESTINAL PAIN [None]
  - VOMITING [None]
